FAERS Safety Report 7799146-X (Version None)
Quarter: 2011Q4

REPORT INFORMATION
  Report Type: 
  Country: None (occurrence: None)
  Receive Date: 20111006
  Receipt Date: 20110928
  Transmission Date: 20120403
  Serious: Yes (Other)
  Sender: FDA-Public Use
  Company Number: GB-PFIZER INC-2011232017

PATIENT
  Age: 69 Year
  Sex: Male

DRUGS (1)
  1. SIROLIMUS [Suspect]
     Dosage: UNK

REACTIONS (3)
  - RENAL FAILURE CHRONIC [None]
  - DYSPHAGIA [None]
  - LIVER TRANSPLANT REJECTION [None]
